FAERS Safety Report 8929235 (Version 1)
Quarter: 2012Q4

REPORT INFORMATION
  Report Type: Spontaneous
  Country: US (occurrence: None)
  Receive Date: 20121126
  Receipt Date: 20121126
  Transmission Date: 20130627
  Serious: Yes (Hospitalization)
  Sender: FDA-Public Use
  Company Number: None

PATIENT
  Age: 81 Year
  Sex: Female
  Weight: 88.45 kg

DRUGS (1)
  1. BRIMONIDINE TARTRATE [Suspect]
     Indication: GLAUCOMA
     Dosage: ONE 10ML drop in eyes three times daily 8 hrs apart
     Route: 031
     Dates: start: 20121003, end: 20121004

REACTIONS (1)
  - Hypertension [None]
